FAERS Safety Report 6762410-7 (Version None)
Quarter: 2010Q2

REPORT INFORMATION
  Report Type: 
  Country: None (occurrence: None)
  Receive Date: 20100609
  Receipt Date: 20100602
  Transmission Date: 20101027
  Serious: Yes (Other)
  Sender: FDA-Public Use
  Company Number: US-SANOFI-AVENTIS-2010SA028700

PATIENT
  Age: 82 Year
  Sex: Female
  Weight: 77.11 kg

DRUGS (20)
  1. LANTUS [Suspect]
     Indication: TYPE 2 DIABETES MELLITUS
     Dosage: DOSE:70 UNIT(S)
     Route: 058
     Dates: start: 20050101
  2. SOLOSTAR [Suspect]
     Indication: TYPE 2 DIABETES MELLITUS
     Dates: start: 20050101
  3. NOVOLOG [Concomitant]
     Dosage: 12 UNITS BEFORE BREAKFAST, WITH LUNCH AND BEFORE DINNER
     Route: 058
  4. ALL OTHER THERAPEUTIC PRODUCTS [Concomitant]
     Dosage: 50 MG WITH BREAKFAST AND 25 MG AT BEDTIME
  5. CYMBALTA [Concomitant]
  6. FOLIC ACID [Concomitant]
  7. LASIX [Concomitant]
     Dosage: 40 MG WITH BREAKFAST AND 40 UNITS AT NIGHT
  8. PLAVIX [Concomitant]
  9. POTASSIUM [Concomitant]
     Dosage: 40 MG WITH BREAKFAST AND 40 MGQ AT BEDTIME
  10. ISOSORBIDE DINITRATE [Concomitant]
     Dosage: 2 WITH BREAKFAST, ONE WITH LUNCH
     Route: 048
  11. ASPIRIN [Concomitant]
  12. CENTRUM SILVER [Concomitant]
  13. CALCIUM MAGNESIUM ZINC [Concomitant]
  14. NEXIUM [Concomitant]
  15. CHOLEST-OFF [Concomitant]
     Dosage: BEFORE NOVOLOG AT BREATKFAST AND BEFORE DINNER
  16. PRAVACHOL [Concomitant]
  17. ZETIA [Suspect]
  18. VALSARTAN [Concomitant]
  19. ACIPHEX [Concomitant]
  20. VITAMIN D [Concomitant]
     Dosage: 400 IN

REACTIONS (1)
  - MACULAR DEGENERATION [None]
